FAERS Safety Report 18355088 (Version 1)
Quarter: 2020Q4

REPORT INFORMATION
  Report Type: Spontaneous
  Country: US (occurrence: US)
  Receive Date: 20201006
  Receipt Date: 20201006
  Transmission Date: 20210114
  Serious: Yes (Hospitalization)
  Sender: FDA-Public Use
  Company Number: None

PATIENT
  Sex: Female

DRUGS (15)
  1. DOCUSATE SODIUM. [Concomitant]
     Active Substance: DOCUSATE SODIUM
  2. HYDROCHLOROT [Concomitant]
     Active Substance: HYDROCHLOROTHIAZIDE
  3. TIMOLOL. [Concomitant]
     Active Substance: TIMOLOL
  4. HYDROCO/APAP [Concomitant]
     Active Substance: ACETAMINOPHEN\HYDROCODONE
  5. GABAPENTIN. [Concomitant]
     Active Substance: GABAPENTIN
  6. LINZESS [Concomitant]
     Active Substance: LINACLOTIDE
  7. MULTIVITAMIN [Concomitant]
     Active Substance: VITAMINS
  8. SIMVASTATIN. [Concomitant]
     Active Substance: SIMVASTATIN
  9. XARELTO [Concomitant]
     Active Substance: RIVAROXABAN
  10. ZOLPIDEM [Concomitant]
     Active Substance: ZOLPIDEM TARTRATE
  11. RISEDRONATE [Concomitant]
     Active Substance: RISEDRONATE SODIUM
  12. INLYTA [Suspect]
     Active Substance: AXITINIB
     Indication: RENAL CANCER STAGE II
     Route: 048
     Dates: start: 202006
  13. FLECAINIDE [Concomitant]
     Active Substance: FLECAINIDE
  14. ONDANSETRON [Concomitant]
     Active Substance: ONDANSETRON
  15. PROCHLOR [Concomitant]

REACTIONS (1)
  - Product dose omission issue [None]
